FAERS Safety Report 10769797 (Version 1)
Quarter: 2015Q1

REPORT INFORMATION
  Report Type: Spontaneous
  Country: BR (occurrence: BR)
  Receive Date: 20150206
  Receipt Date: 20150206
  Transmission Date: 20150721
  Serious: Yes (Death, Other)
  Sender: FDA-Public Use
  Company Number: BR-PFIZER INC-2014270476

PATIENT
  Age: 53 Year
  Sex: Male
  Weight: 55 kg

DRUGS (1)
  1. SUTENT [Suspect]
     Active Substance: SUNITINIB MALATE
     Indication: RENAL CELL CARCINOMA
     Dosage: 50 MG, CYCLIC (CYCLE 2X1)
     Route: 048
     Dates: start: 20140716

REACTIONS (6)
  - Death [Fatal]
  - Pulmonary oedema [Unknown]
  - Respiratory failure [Unknown]
  - Constipation [Unknown]
  - Dry mouth [Unknown]
  - Feeding disorder [Not Recovered/Not Resolved]

NARRATIVE: CASE EVENT DATE: 2014
